FAERS Safety Report 14559818 (Version 1)
Quarter: 2018Q1

REPORT INFORMATION
  Report Type: Spontaneous
  Country: ES (occurrence: ES)
  Receive Date: 20180220
  Receipt Date: 20180220
  Transmission Date: 20180509
  Serious: No
  Sender: FDA-Public Use
  Company Number: None

PATIENT
  Age: 13 Year
  Sex: Male
  Weight: 45 kg

DRUGS (1)
  1. MIDAZOLAM [Suspect]
     Active Substance: MIDAZOLAM HYDROCHLORIDE
     Indication: PREOPERATIVE CARE
     Dates: start: 20180214, end: 20180214

REACTIONS (5)
  - Agitation [None]
  - Respiratory distress [None]
  - Seizure [None]
  - Hallucination [None]
  - Dyskinesia [None]

NARRATIVE: CASE EVENT DATE: 20180214
